FAERS Safety Report 7281921-1 (Version None)
Quarter: 2011Q1

REPORT INFORMATION
  Report Type: 
  Country: None (occurrence: None)
  Receive Date: 20110128
  Receipt Date: 20110117
  Transmission Date: 20110831
  Serious: Yes (Other)
  Sender: FDA-Public Use
  Company Number: 803488

PATIENT
  Age: 48 Year
  Sex: Female
  Weight: 70.45 kg

DRUGS (2)
  1. OXALIPLATIN [Suspect]
     Indication: CHEMOTHERAPY
     Dosage: 125ML/HR, PORT, OTHER
     Route: 050
     Dates: start: 20110117, end: 20110117
  2. OXALIPLATIN [Suspect]
     Indication: CHEMOTHERAPY
     Dosage: 125ML./HR, PORT, OTHER
     Route: 050
     Dates: start: 20110117, end: 20110117

REACTIONS (2)
  - NASAL CONGESTION [None]
  - ERYTHEMA [None]
